FAERS Safety Report 18297158 (Version 1)
Quarter: 2020Q3

REPORT INFORMATION
  Report Type: Report from Study
  Country: None (occurrence: US)
  Receive Date: 20200923
  Receipt Date: 20200923
  Transmission Date: 20201103
  Serious: Yes (Other)
  Sender: FDA-Public Use
  Company Number: US-ABBVIE-20K-163-3566801-00

PATIENT
  Sex: Female
  Weight: 93.52 kg

DRUGS (5)
  1. VITAMIN D3 [Concomitant]
     Active Substance: CHOLECALCIFEROL
     Indication: PRODUCT USED FOR UNKNOWN INDICATION
  2. VITAMIN B12 [Concomitant]
     Active Substance: CYANOCOBALAMIN
     Indication: PRODUCT USED FOR UNKNOWN INDICATION
  3. SYNTHROID [Suspect]
     Active Substance: LEVOTHYROXINE SODIUM
     Indication: HYPOTHYROIDISM
     Route: 048
     Dates: start: 2008
  4. VITAMIN C [Concomitant]
     Active Substance: ASCORBIC ACID
     Indication: PRODUCT USED FOR UNKNOWN INDICATION
  5. VITAMIN D [Concomitant]
     Active Substance: VITAMIN D NOS
     Indication: PRODUCT USED FOR UNKNOWN INDICATION

REACTIONS (13)
  - Thyroid hormones increased [Unknown]
  - Platelet count decreased [Unknown]
  - Hepatic enzyme increased [Unknown]
  - Pneumoperitoneum [Recovered/Resolved]
  - Thyroid mass [Not Recovered/Not Resolved]
  - Blood sodium decreased [Unknown]
  - Diverticulitis [Recovered/Resolved]
  - White blood cell count decreased [Unknown]
  - Asthenia [Recovering/Resolving]
  - Serotonin syndrome [Unknown]
  - Muscle spasms [Recovering/Resolving]
  - Chills [Recovering/Resolving]
  - Hyperhidrosis [Recovering/Resolving]

NARRATIVE: CASE EVENT DATE: 2017
